FAERS Safety Report 7789720-9 (Version None)
Quarter: 2011Q3

REPORT INFORMATION
  Report Type: 
  Country: None (occurrence: None)
  Receive Date: 20110930
  Receipt Date: 20110926
  Transmission Date: 20111222
  Serious: Yes (Death, Hospitalization)
  Sender: FDA-Public Use
  Company Number: US-BRISTOL-MYERS SQUIBB COMPANY-16093619

PATIENT
  Age: 70 Year
  Sex: Female

DRUGS (4)
  1. CYCLOPHOSPHAMIDE [Suspect]
     Indication: BREAST CANCER
  2. TRASTUZUMAB [Suspect]
     Indication: BREAST CANCER
  3. DOXORUBICIN HCL [Suspect]
     Indication: BREAST CANCER
  4. PACLITAXEL [Suspect]
     Indication: BREAST CANCER

REACTIONS (5)
  - DIFFUSE ALVEOLAR DAMAGE [None]
  - CARDIOGENIC SHOCK [None]
  - CARDIAC FAILURE CONGESTIVE [None]
  - RESPIRATORY FAILURE [None]
  - LACTIC ACIDOSIS [None]
